FAERS Safety Report 24013527 (Version 1)
Quarter: 2024Q2

REPORT INFORMATION
  Report Type: Spontaneous
  Country: AU (occurrence: AU)
  Receive Date: 20240626
  Receipt Date: 20240626
  Transmission Date: 20240715
  Serious: Yes (Hospitalization, Other)
  Sender: FDA-Public Use
  Company Number: AU-AMGEN-AUSSP2024123613

PATIENT
  Age: 41 Year
  Sex: Male

DRUGS (1)
  1. REPATHA [Suspect]
     Active Substance: EVOLOCUMAB
     Indication: Product used for unknown indication
     Dosage: UNK
     Route: 065
     Dates: start: 202312

REACTIONS (8)
  - Psychotic disorder [Recovering/Resolving]
  - Hallucination, auditory [Unknown]
  - Blepharospasm [Unknown]
  - Brain fog [Unknown]
  - Dissociative disorder [Unknown]
  - Muscle twitching [Unknown]
  - Social avoidant behaviour [Unknown]
  - Tremor [Recovered/Resolved]

NARRATIVE: CASE EVENT DATE: 20240101
